FAERS Safety Report 18398203 (Version 1)
Quarter: 2020Q4

REPORT INFORMATION
  Report Type: Spontaneous
  Country: US (occurrence: US)
  Receive Date: 20201019
  Receipt Date: 20201019
  Transmission Date: 20210114
  Serious: Yes (Hospitalization)
  Sender: FDA-Public Use
  Company Number: None

PATIENT
  Age: 71 Year
  Sex: Male
  Weight: 102.97 kg

DRUGS (1)
  1. NITROFURANTOIN (NITROFURANTOIN 100MG TAB) [Suspect]
     Active Substance: NITROFURANTOIN
     Indication: URINARY TRACT INFECTION
     Route: 048
     Dates: start: 20200505, end: 20200615

REACTIONS (9)
  - Constipation [None]
  - Vomiting [None]
  - Pyrexia [None]
  - Hepatic enzyme increased [None]
  - Chromaturia [None]
  - Abdominal pain upper [None]
  - Nausea [None]
  - Decreased appetite [None]
  - Hepatotoxicity [None]

NARRATIVE: CASE EVENT DATE: 20200622
